FAERS Safety Report 6764210-0 (Version None)
Quarter: 2010Q2

REPORT INFORMATION
  Report Type: 
  Country: None (occurrence: None)
  Receive Date: 20100610
  Receipt Date: 20100602
  Transmission Date: 20101027
  Serious: Yes (Hospitalization)
  Sender: FDA-Public Use
  Company Number: B0652756A

PATIENT
  Sex: Male
  Weight: 64 kg

DRUGS (13)
  1. SERETIDE [Suspect]
     Indication: CHRONIC OBSTRUCTIVE PULMONARY DISEASE
     Route: 055
     Dates: start: 20091118, end: 20100508
  2. AMARYL [Concomitant]
     Dosage: 1IUAX PER DAY
     Route: 048
  3. AMLODIN [Concomitant]
     Dosage: 1IUAX PER DAY
     Route: 048
  4. SPIRIVA [Concomitant]
     Indication: CHRONIC OBSTRUCTIVE PULMONARY DISEASE
     Dosage: 1IUAX PER DAY
     Route: 055
     Dates: start: 20091118, end: 20100508
  5. PAXIL [Concomitant]
     Dosage: 10MG PER DAY
     Route: 048
  6. MAGMITT [Concomitant]
     Dosage: 990MG PER DAY
     Route: 048
  7. LAC B [Concomitant]
     Dosage: 3G PER DAY
     Route: 048
  8. GASCON [Concomitant]
     Dosage: 120MG PER DAY
     Route: 048
  9. MUCOSTA [Concomitant]
     Indication: GASTRITIS PROPHYLAXIS
     Dosage: 100MG PER DAY
     Route: 048
     Dates: start: 20100508
  10. FLUNASE (JAPAN) [Concomitant]
     Dosage: 200MCG PER DAY
     Route: 045
  11. MEPTIN AIR [Concomitant]
     Indication: CHRONIC OBSTRUCTIVE PULMONARY DISEASE
     Dosage: 20MG PER DAY
     Route: 055
  12. MOHRUS TAPE [Concomitant]
     Dosage: 40MG PER DAY
     Route: 062
  13. HUSCODE [Concomitant]
     Indication: CHRONIC OBSTRUCTIVE PULMONARY DISEASE
     Dosage: 1IUAX PER DAY
     Route: 048
     Dates: start: 20100120

REACTIONS (10)
  - BRONCHOPNEUMONIA [None]
  - COUGH [None]
  - HAEMOPHILUS INFECTION [None]
  - HEADACHE [None]
  - IRRITABILITY [None]
  - MALAISE [None]
  - NASOPHARYNGITIS [None]
  - PNEUMONIA BACTERIAL [None]
  - PRODUCTIVE COUGH [None]
  - PYREXIA [None]
